FAERS Safety Report 9890584 (Version 1)
Quarter: 2014Q1

REPORT INFORMATION
  Report Type: Spontaneous
  Country: US (occurrence: None)
  Receive Date: 20140210
  Receipt Date: 20140210
  Transmission Date: 20141002
  Serious: Yes (Hospitalization)
  Sender: FDA-Public Use
  Company Number: None

PATIENT
  Age: 81 Year
  Sex: Male
  Weight: 84.1 kg

DRUGS (3)
  1. WARFARIN [Suspect]
     Indication: ATRIAL FIBRILLATION
     Route: 048
     Dates: start: 20110920
  2. WARFARIN [Suspect]
     Indication: THROMBOSIS PROPHYLAXIS
     Route: 048
     Dates: start: 20110920
  3. ASPIRIN [Suspect]
     Route: 048
     Dates: start: 20110920

REACTIONS (3)
  - Haemorrhage [None]
  - Anaemia [None]
  - Gastric haemorrhage [None]
